FAERS Safety Report 9401404 (Version 1)
Quarter: 2013Q3

REPORT INFORMATION
  Report Type: Spontaneous
  Country: CN (occurrence: CN)
  Receive Date: 20130715
  Receipt Date: 20130715
  Transmission Date: 20140515
  Serious: Yes (Other)
  Sender: FDA-Public Use
  Company Number: CN-BAXTER-2013BAX026561

PATIENT
  Age: 51 Year
  Sex: Female

DRUGS (1)
  1. 20% MANNITOL INJECTION [Suspect]
     Indication: CEREBRAL INFARCTION
     Route: 042
     Dates: start: 20120328, end: 20120328

REACTIONS (3)
  - Palpitations [Recovering/Resolving]
  - Cold sweat [Recovering/Resolving]
  - Heart rate increased [Recovering/Resolving]
